FAERS Safety Report 6375644-0 (Version None)
Quarter: 2009Q3

REPORT INFORMATION
  Report Type: 
  Country: None (occurrence: None)
  Receive Date: 20090918
  Receipt Date: 20090918
  Transmission Date: 20100115
  Serious: Yes (Other)
  Sender: FDA-Public Use
  Company Number: None

PATIENT
  Age: 42 Year
  Sex: Female
  Weight: 70.7611 kg

DRUGS (1)
  1. EFFEXOR XR [Suspect]
     Indication: DEPRESSION
     Dosage: 150 MG ONCE DAILY PO
     Route: 048
     Dates: start: 20060601, end: 20090918

REACTIONS (21)
  - AGITATION [None]
  - ASTHENIA [None]
  - COORDINATION ABNORMAL [None]
  - CRYING [None]
  - DIARRHOEA [None]
  - DRUG DEPENDENCE [None]
  - DYSGEUSIA [None]
  - FEAR [None]
  - FEELING ABNORMAL [None]
  - FEELING JITTERY [None]
  - HEADACHE [None]
  - IRRITABILITY [None]
  - LETHARGY [None]
  - NAUSEA [None]
  - NERVOUSNESS [None]
  - PAIN IN JAW [None]
  - SOMNOLENCE [None]
  - TINNITUS [None]
  - TREMOR [None]
  - VERTIGO [None]
  - WITHDRAWAL SYNDROME [None]
